FAERS Safety Report 15174055 (Version 1)
Quarter: 2018Q3

REPORT INFORMATION
  Report Type: Report from Study
  Country: US (occurrence: US)
  Receive Date: 20180720
  Receipt Date: 20180720
  Transmission Date: 20181010
  Serious: No
  Sender: FDA-Public Use
  Company Number: US-AMGEN-USASL2018069934

PATIENT
  Age: 74 Year
  Sex: Female

DRUGS (2)
  1. REPATHA [Suspect]
     Active Substance: EVOLOCUMAB
     Indication: HYPERCHOLESTEROLAEMIA
     Dosage: 420 MG, QMO
     Route: 065
     Dates: start: 20180521
  2. REPATHA [Suspect]
     Active Substance: EVOLOCUMAB
     Indication: ARTERIOSCLEROSIS CORONARY ARTERY
     Dosage: 140 MG, Q2WK
     Route: 065

REACTIONS (13)
  - Injection site hypoaesthesia [Recovering/Resolving]
  - Flushing [Recovering/Resolving]
  - Injection site pain [Recovering/Resolving]
  - Eye pruritus [Recovering/Resolving]
  - Feeling abnormal [Unknown]
  - Pruritus [Not Recovered/Not Resolved]
  - Feeling hot [Recovering/Resolving]
  - Dyspnoea [Recovering/Resolving]
  - Dry skin [Unknown]
  - Chills [Recovering/Resolving]
  - Erythema [Unknown]
  - Wrong technique in product usage process [Unknown]
  - Oral discomfort [Unknown]

NARRATIVE: CASE EVENT DATE: 2018
